FAERS Safety Report 4633740-X (Version None)
Quarter: 2005Q2

REPORT INFORMATION
  Report Type: 
  Country: None (occurrence: None)
  Receive Date: 20050325
  Receipt Date: 20050110
  Transmission Date: 20051028
  Serious: No
  Sender: FDA-Public Use
  Company Number: USA041285910

PATIENT
  Age: 70 Year
  Sex: Female
  Weight: 52 kg

DRUGS (11)
  1. FORTEO [Suspect]
     Indication: OSTEOPOROSIS
     Dosage: 20 UG/1 DAY
     Dates: start: 20041208
  2. VIACTIV [Concomitant]
  3. IRON SULFATETHIAMIN COMPOUND TAB [Concomitant]
  4. CALCIUM CARBONATE [Concomitant]
  5. LIPITOR [Concomitant]
  6. METHOTREXATE [Concomitant]
  7. FOLIC ACID [Concomitant]
  8. CELEBREX [Concomitant]
  9. PROTONIX [Concomitant]
  10. CLARINEX [Concomitant]
  11. COSAMIN DS [Concomitant]

REACTIONS (1)
  - BLOOD URINE [None]
